FAERS Safety Report 16750671 (Version 11)
Quarter: 2020Q2

REPORT INFORMATION
  Report Type: Report from Study
  Country: ES (occurrence: ES)
  Receive Date: 20190828
  Receipt Date: 20200417
  Transmission Date: 20200713
  Serious: Yes (Death, Hospitalization)
  Sender: FDA-Public Use
  Company Number: ES-ROCHE-2385246

PATIENT
  Age: 78 Year
  Sex: Male
  Weight: 77.6 kg

DRUGS (15)
  1. PARACETAMOL [Concomitant]
     Active Substance: ACETAMINOPHEN
     Route: 042
     Dates: start: 20190716, end: 20190716
  2. PARACETAMOL [Concomitant]
     Active Substance: ACETAMINOPHEN
     Indication: PROPHYLAXIS
     Route: 042
     Dates: start: 20190508, end: 20190508
  3. PARACETAMOL [Concomitant]
     Active Substance: ACETAMINOPHEN
     Route: 042
     Dates: start: 20190514, end: 20190514
  4. FORTASEC [LOPERAMIDE] [Concomitant]
     Route: 065
     Dates: start: 20190422, end: 20190423
  5. NOLOTIL [METAMIZOLE MAGNESIUM] [Concomitant]
     Active Substance: METAMIZOLE MAGNESIUM
     Route: 065
     Dates: start: 201901, end: 20190424
  6. ATEZOLIZUMAB. [Suspect]
     Active Substance: ATEZOLIZUMAB
     Indication: HEPATOCELLULAR CARCINOMA
     Route: 042
     Dates: start: 20190424, end: 20190424
  7. PARACETAMOL [Concomitant]
     Active Substance: ACETAMINOPHEN
     Route: 042
     Dates: start: 20190625, end: 20190625
  8. ISATUXIMAB [Suspect]
     Active Substance: ISATUXIMAB
     Route: 042
     Dates: start: 20190716, end: 20190716
  9. PARACETAMOL [Concomitant]
     Active Substance: ACETAMINOPHEN
     Route: 065
     Dates: start: 20190424, end: 20190430
  10. ZALDIAR [Concomitant]
     Active Substance: ACETAMINOPHEN\TRAMADOL HYDROCHLORIDE
     Route: 065
     Dates: start: 201901, end: 20190424
  11. ENALAPRIL [Concomitant]
     Active Substance: ENALAPRIL
     Dosage: TOTAL DAILY DOSE: 1000;UNIT: MG;ROUTE: INTRAVENOUS?TOTAL DAILY DOSE: 50;UNIT: MG;ROUTE: INTRAVENOUS
     Route: 042
     Dates: start: 20190508, end: 20190508
  12. PARACETAMOL [Concomitant]
     Active Substance: ACETAMINOPHEN
     Route: 042
     Dates: start: 20190604, end: 20190604
  13. ATEZOLIZUMAB. [Suspect]
     Active Substance: ATEZOLIZUMAB
     Route: 041
     Dates: start: 20190716, end: 20190716
  14. ISATUXIMAB [Suspect]
     Active Substance: ISATUXIMAB
     Indication: HEPATOCELLULAR CARCINOMA
     Route: 042
     Dates: start: 20190424, end: 20190424
  15. ISATUXIMAB [Suspect]
     Active Substance: ISATUXIMAB
     Route: 042
     Dates: start: 20190430, end: 20190430

REACTIONS (3)
  - Renal failure [Fatal]
  - Immune-mediated hepatitis [Fatal]
  - Hyperuricaemia [Fatal]

NARRATIVE: CASE EVENT DATE: 20190430
